FAERS Safety Report 7017714-X (Version None)
Quarter: 2010Q3

REPORT INFORMATION
  Report Type: 
  Country: None (occurrence: None)
  Receive Date: 20100928
  Receipt Date: 20100916
  Transmission Date: 20110219
  Serious: Yes (Other)
  Sender: FDA-Public Use
  Company Number: US-JNJFOC-20100905828

PATIENT
  Age: 50 Year
  Sex: Female

DRUGS (6)
  1. REMICADE [Suspect]
     Indication: PSORIASIS
     Route: 042
  2. STELARA [Suspect]
     Indication: PSORIASIS
     Route: 058
  3. METHOTREXATE [Concomitant]
     Indication: PSORIASIS
     Route: 048
  4. SORIATANE [Concomitant]
     Indication: PSORIASIS
     Route: 048
  5. ENBREL [Concomitant]
     Indication: PSORIASIS
     Route: 058
  6. HUMIRA [Concomitant]
     Indication: PSORIASIS

REACTIONS (1)
  - THROMBOSIS [None]
